FAERS Safety Report 26010961 (Version 1)
Quarter: 2025Q4

REPORT INFORMATION
  Report Type: Spontaneous
  Country: EU (occurrence: EU)
  Receive Date: 20251107
  Receipt Date: 20251107
  Transmission Date: 20260118
  Serious: Yes (Congenital Anomaly)
  Sender: ORGANON
  Company Number: None

PATIENT
  Sex: Male
  Weight: 3.32 kg

DRUGS (8)
  1. RIZATRIPTAN [Suspect]
     Active Substance: RIZATRIPTAN
     Indication: Migraine
     Dosage: ACUTE MEDICATION: GW 0 - GW 23 (TAKEN 1-4X PER MONTH), NOT TAKEN GW 24-35, FROM GW 36 UNTIL BIRTH TAKEN APPROXIMATELY TWICE A WEEK
     Dates: start: 202406, end: 202411
  2. RIZATRIPTAN [Suspect]
     Active Substance: RIZATRIPTAN
     Indication: Migraine
     Dosage: ACUTE MEDICATION: GW 0 - GW 23 (TAKEN 1-4X PER MONTH), NOT TAKEN GW 24-35, FROM GW 36 UNTIL BIRTH...
  3. AIMOVIG [Suspect]
     Active Substance: ERENUMAB-AOOE
     Indication: Migraine prophylaxis
     Dosage: + PRECONCEPTIONALLY
     Dates: start: 202406, end: 202406
  4. BOTOX [Concomitant]
     Active Substance: ONABOTULINUMTOXINA
     Indication: Migraine prophylaxis
     Dosage: + PRECONCEPTIONALLY (LAST APPLICATION 4 WEEKS BEFORE CONCEPTION)ONLY APPLIED ONCE DURING PREGNANCY
     Dates: start: 202411, end: 202411
  5. BOOSTRIX [Concomitant]
     Active Substance: TETANUS TOXOID, REDUCED DIPHTHERIA TOXOID AND ACELLULAR PERTUSSIS VACCINE ADSORBED, TDAP
     Indication: Immunisation
     Dosage: UNK
     Dates: start: 202502, end: 202502
  6. Influsplit Tetra 2024/2025 [Concomitant]
     Indication: Immunisation
     Dosage: UNK
     Dates: start: 202410, end: 202410
  7. Influsplit Tetra 2024/2025 [Concomitant]
     Indication: Immunisation
  8. CYTOTEC [Concomitant]
     Active Substance: MISOPROSTOL
     Indication: Induced labour
     Dosage: OVERALL 150 UG: 2X 25 AND 2X 50 UG

REACTIONS (2)
  - Persistent left superior vena cava [Recovering/Resolving]
  - Foetal exposure during pregnancy [Unknown]

NARRATIVE: CASE EVENT DATE: 20250301
